FAERS Safety Report 25464028 (Version 1)
Quarter: 2025Q2

REPORT INFORMATION
  Report Type: Spontaneous
  Country: US (occurrence: US)
  Receive Date: 20250621
  Receipt Date: 20250621
  Transmission Date: 20250716
  Serious: No
  Sender: AUROBINDO
  Company Number: US-AUROBINDO-AUR-APL-2024-034483

PATIENT
  Age: 69 Year
  Sex: Female
  Weight: 72.574 kg

DRUGS (2)
  1. ZANTAC 360 [Suspect]
     Active Substance: FAMOTIDINE
     Indication: Gastrooesophageal reflux disease
     Dosage: UNK UNK, ONCE A DAY (ONCE A DAY, IF NOT WORKING THEN SHE TOOK TWICE A DA)
     Route: 065
  2. ZANTAC 360 [Suspect]
     Active Substance: FAMOTIDINE
     Indication: Chest pain

REACTIONS (2)
  - Expired product administered [Unknown]
  - Drug ineffective [Unknown]
